FAERS Safety Report 17379702 (Version 1)
Quarter: 2020Q1

REPORT INFORMATION
  Report Type: Spontaneous
  Country: US (occurrence: US)
  Receive Date: 20200206
  Receipt Date: 20200206
  Transmission Date: 20200409
  Serious: No
  Sender: FDA-Public Use
  Company Number: US-ABBVIE-19K-163-2690335-00

PATIENT
  Sex: Male
  Weight: 99.88 kg

DRUGS (3)
  1. OTEZLA [Suspect]
     Active Substance: APREMILAST
     Indication: PRODUCT USED FOR UNKNOWN INDICATION
     Route: 065
  2. HUMIRA [Suspect]
     Active Substance: ADALIMUMAB
     Indication: PRODUCT USED FOR UNKNOWN INDICATION
     Route: 058
  3. XELJANZ XR [Suspect]
     Active Substance: TOFACITINIB CITRATE
     Indication: PRODUCT USED FOR UNKNOWN INDICATION
     Route: 065
     Dates: start: 201810

REACTIONS (11)
  - Faeces pale [Unknown]
  - Flatulence [Not Recovered/Not Resolved]
  - Therapeutic product effect incomplete [Unknown]
  - Faeces soft [Recovering/Resolving]
  - Feeling abnormal [Unknown]
  - Asthenia [Unknown]
  - Abdominal discomfort [Unknown]
  - Gastric pH decreased [Unknown]
  - Abnormal faeces [Recovering/Resolving]
  - Irritable bowel syndrome [Recovered/Resolved]
  - Inflammation [Unknown]
